FAERS Safety Report 13755664 (Version 2)
Quarter: 2017Q4

REPORT INFORMATION
  Report Type: Report from Study
  Country: None (occurrence: BR)
  Receive Date: 20170714
  Receipt Date: 20171031
  Transmission Date: 20180320
  Serious: Yes (Hospitalization, Other)
  Sender: FDA-Public Use
  Company Number: BR-ABBVIE-17K-020-2032575-00

PATIENT
  Age: 77 Year
  Sex: Female
  Weight: 59 kg

DRUGS (14)
  1. LYRICA [Suspect]
     Active Substance: PREGABALIN
     Indication: PAIN
     Route: 048
     Dates: start: 201610
  2. CLOPIDOGREL BISULFATE. [Concomitant]
     Active Substance: CLOPIDOGREL BISULFATE
     Indication: ANTICOAGULANT THERAPY
     Route: 048
     Dates: start: 2012
  3. OMEPRAZOLE. [Concomitant]
     Active Substance: OMEPRAZOLE
     Indication: PROPHYLAXIS
     Route: 048
     Dates: start: 1999
  4. FORASEQ [Concomitant]
     Active Substance: BUDESONIDE\FORMOTEROL FUMARATE
     Indication: ASTHMA
     Dosage: FORM STRENGTH:??FORMOTEROL FUMARATE 12 MCG/ BUDESONIDE 400 MCG
     Route: 055
  5. METHOTREXATE. [Concomitant]
     Active Substance: METHOTREXATE
     Indication: ARTHRITIS
     Route: 048
     Dates: start: 2012
  6. HUMIRA [Suspect]
     Active Substance: ADALIMUMAB
     Indication: RHEUMATOID ARTHRITIS
     Route: 058
     Dates: start: 20151015
  7. FLU VACCINE [Concomitant]
     Active Substance: INFLUENZA VIRUS VACCINE
     Indication: PRODUCT USED FOR UNKNOWN INDICATION
  8. CAPTOPRIL. [Concomitant]
     Active Substance: CAPTOPRIL
     Indication: HYPERTENSION
     Route: 048
  9. AMLODIPINE [Concomitant]
     Active Substance: AMLODIPINE BESYLATE
     Indication: PRODUCT USED FOR UNKNOWN INDICATION
  10. CALCIUM [Concomitant]
     Active Substance: CALCIUM
     Indication: PRODUCT USED FOR UNKNOWN INDICATION
  11. ROSUVASTATIN. [Concomitant]
     Active Substance: ROSUVASTATIN
     Indication: ANTICOAGULANT THERAPY
     Route: 048
     Dates: start: 2012
  12. OMEPRAZOLE. [Concomitant]
     Active Substance: OMEPRAZOLE
     Indication: GASTRIC DISORDER
  13. LORATADINE. [Suspect]
     Active Substance: LORATADINE
     Indication: HYPERSENSITIVITY
     Route: 048
     Dates: start: 2007
  14. VICKS VAPORUB [Concomitant]
     Active Substance: CAMPHOR (SYNTHETIC)\EUCALYPTUS OIL\MENTHOL
     Indication: ASTHMA
     Route: 061

REACTIONS (14)
  - Lung perforation [Recovering/Resolving]
  - Musculoskeletal chest pain [Not Recovered/Not Resolved]
  - Fracture malunion [Unknown]
  - Fall [Recovered/Resolved]
  - Pleural effusion [Unknown]
  - Somnolence [Recovering/Resolving]
  - Head injury [Recovered/Resolved]
  - Hypoaesthesia [Unknown]
  - Sinusitis [Recovered/Resolved]
  - Wrist fracture [Recovering/Resolving]
  - Rib fracture [Recovering/Resolving]
  - Product preparation error [Recovered/Resolved]
  - Arthralgia [Not Recovered/Not Resolved]
  - Influenza [Recovered/Resolved]

NARRATIVE: CASE EVENT DATE: 201610
